FAERS Safety Report 7477531-3 (Version None)
Quarter: 2011Q2

REPORT INFORMATION
  Report Type: 
  Country: None (occurrence: None)
  Receive Date: 20110513
  Receipt Date: 20110428
  Transmission Date: 20111010
  Serious: Yes (Hospitalization)
  Sender: FDA-Public Use
  Company Number: US-ELI_LILLY_AND_COMPANY-US201009004698

PATIENT
  Sex: Female

DRUGS (15)
  1. FORTEO [Suspect]
     Dosage: 20 UG, QD
     Dates: start: 20110101
  2. DIOVAN [Concomitant]
     Dosage: UNK, DAILY (1/D)
  3. VITAMIN D [Concomitant]
  4. MAGNESIUM [Concomitant]
  5. LOVAZA [Concomitant]
  6. SYNTHROID [Concomitant]
  7. CALCIUM [Concomitant]
  8. FORTEO [Suspect]
     Indication: OSTEOPOROSIS
     Dosage: 20 UG, DAILY (1/D)
     Dates: start: 20100801, end: 20101001
  9. AMBIEN [Concomitant]
     Dosage: UNK, DAILY (1/D)
  10. ARTHROTEC [Concomitant]
  11. LYRICA [Concomitant]
  12. LEVOTHYROXINE SODIUM [Concomitant]
     Dosage: UNK, DAILY (1/D)
  13. COENZYME Q10 [Concomitant]
  14. CRESTOR [Concomitant]
     Dosage: UNK, DAILY (1/D)
  15. MULTI-VITAMIN [Concomitant]

REACTIONS (3)
  - GRAFT HAEMORRHAGE [None]
  - IMPAIRED HEALING [None]
  - BLOOD PRESSURE DECREASED [None]
